FAERS Safety Report 6594372-X (Version None)
Quarter: 2010Q1

REPORT INFORMATION
  Report Type: 
  Country: None (occurrence: None)
  Receive Date: 20100222
  Receipt Date: 20100217
  Transmission Date: 20100710
  Serious: Yes (Life-Threatening, Hospitalization, Disabling, Other)
  Sender: FDA-Public Use
  Company Number: A0841007A

PATIENT
  Sex: Female

DRUGS (2)
  1. LAMICTAL [Suspect]
     Indication: CONVULSION
     Route: 048
  2. PAIN MEDICATION [Concomitant]

REACTIONS (6)
  - COMA [None]
  - DIARRHOEA [None]
  - HEPATOCELLULAR INJURY [None]
  - HYPERSENSITIVITY [None]
  - ILL-DEFINED DISORDER [None]
  - RASH [None]
